FAERS Safety Report 6402239-2 (Version None)
Quarter: 2009Q4

REPORT INFORMATION
  Report Type: 
  Country: None (occurrence: None)
  Receive Date: 20091014
  Receipt Date: 20091014
  Transmission Date: 20100525
  Serious: Yes (Other)
  Sender: FDA-Public Use
  Company Number: None

PATIENT

DRUGS (1)
  1. HYDROXYCHLOROQUIN [Suspect]

REACTIONS (3)
  - DIARRHOEA [None]
  - HEADACHE [None]
  - VISION BLURRED [None]
